FAERS Safety Report 7928258-2 (Version None)
Quarter: 2011Q4

REPORT INFORMATION
  Report Type: 
  Country: None (occurrence: None)
  Receive Date: 20111118
  Receipt Date: 20111109
  Transmission Date: 20120403
  Serious: Yes (Other)
  Sender: FDA-Public Use
  Company Number: RO-MERCK-1111USA01191

PATIENT
  Age: 5 Year
  Sex: Female

DRUGS (4)
  1. SINGULAIR [Suspect]
     Indication: RHINITIS ALLERGIC
     Route: 048
     Dates: start: 20110803, end: 20111108
  2. SINGULAIR [Suspect]
     Indication: ASTHMA
     Route: 048
     Dates: start: 20110803, end: 20111108
  3. FLUTICASONE PROPIONATE [Concomitant]
     Route: 055
  4. DESLORATADINE [Concomitant]
     Route: 048

REACTIONS (5)
  - ABNORMAL DREAMS [None]
  - DISTURBANCE IN SOCIAL BEHAVIOUR [None]
  - PHOBIA [None]
  - SLEEP DISORDER [None]
  - SELF INJURIOUS BEHAVIOUR [None]
